FAERS Safety Report 20102978 (Version 1)
Quarter: 2021Q4

REPORT INFORMATION
  Report Type: Spontaneous
  Country: US (occurrence: US)
  Receive Date: 20211123
  Receipt Date: 20211123
  Transmission Date: 20220303
  Serious: No
  Sender: FDA-Public Use
  Company Number: US-GLAXOSMITHKLINE-USCH2021084007

PATIENT
  Age: 56 Year
  Sex: Female

DRUGS (1)
  1. VOLTAREN ARTHRITIS PAIN [Suspect]
     Active Substance: DICLOFENAC SODIUM
     Indication: Arthritis
     Dosage: UNK
     Route: 061
     Dates: start: 20211115

REACTIONS (2)
  - Application site exfoliation [Unknown]
  - Skin swelling [Unknown]

NARRATIVE: CASE EVENT DATE: 20211115
